FAERS Safety Report 23231087 (Version 1)
Quarter: 2023Q4

REPORT INFORMATION
  Report Type: Spontaneous
  Country: US (occurrence: None)
  Receive Date: 20231122
  Receipt Date: 20231122
  Transmission Date: 20240110
  Serious: Yes (Hospitalization)
  Sender: FDA-Public Use
  Company Number: None

PATIENT
  Age: 27 Year
  Sex: Female

DRUGS (1)
  1. HUMIRA [Suspect]
     Active Substance: ADALIMUMAB
     Dosage: FREQUENCY : EVERY OTHER WEEK;?

REACTIONS (5)
  - Accident [None]
  - Fall [None]
  - Multi-organ disorder [None]
  - Inflammation [None]
  - Renal failure [None]

NARRATIVE: CASE EVENT DATE: 20231108
